FAERS Safety Report 19549025 (Version 2)
Quarter: 2021Q3

REPORT INFORMATION
  Report Type: Spontaneous
  Country: JP (occurrence: JP)
  Receive Date: 20210715
  Receipt Date: 20210811
  Transmission Date: 20211014
  Serious: Yes (Death, Life-Threatening, Hospitalization, Other)
  Sender: FDA-Public Use
  Company Number: JP-JNJFOC-20210729276

PATIENT
  Age: 69 Year
  Sex: Male

DRUGS (10)
  1. XARELTO [Suspect]
     Active Substance: RIVAROXABAN
     Indication: PERICARDIAL EFFUSION
     Dosage: 15 MG, QD
     Route: 048
  2. BEVACIZUMAB. [Suspect]
     Active Substance: BEVACIZUMAB
     Indication: METASTASES TO LUNG
  3. COLCHICINE. [Suspect]
     Active Substance: COLCHICINE
     Indication: PERICARDITIS
     Dosage: 0.5 MG, QD
     Route: 048
  4. COLCHICINE. [Suspect]
     Active Substance: COLCHICINE
     Indication: PERICARDIAL EFFUSION
  5. XARELTO [Suspect]
     Active Substance: RIVAROXABAN
     Indication: PERICARDITIS
  6. ASPRIN [Interacting]
     Active Substance: ASPIRIN
     Indication: PERICARDIAL EFFUSION
     Dosage: 750 MG, Q8HR
     Route: 048
  7. VALSARTAN. [Concomitant]
     Active Substance: VALSARTAN
     Dosage: 80 MG, QD
  8. CILOSTAZOL. [Suspect]
     Active Substance: CILOSTAZOL
     Dosage: 200 MG, QD
  9. CILNIDIPINE [Concomitant]
     Active Substance: CILNIDIPINE
     Dosage: 10 MG, QD
  10. ASPRIN [Interacting]
     Active Substance: ASPIRIN
     Indication: PERICARDITIS
     Dosage: 100 MG, QD

REACTIONS (11)
  - Cardiac tamponade [Fatal]
  - Pulseless electrical activity [Fatal]
  - Coronary sinus injury [Fatal]
  - Cardiac dysfunction [Fatal]
  - Cardiogenic shock [Fatal]
  - Pericardial haemorrhage [Fatal]
  - Labelled drug-drug interaction medication error [Fatal]
  - Off label use [Unknown]
  - Atrial fibrillation [Fatal]
  - Myocarditis [Fatal]
  - Cardiac vein perforation [Fatal]
